FAERS Safety Report 9752463 (Version 2)
Quarter: 2014Q1

REPORT INFORMATION
  Report Type: Spontaneous
  Country: HU (occurrence: HU)
  Receive Date: 20131213
  Receipt Date: 20140228
  Transmission Date: 20141002
  Serious: Yes (Hospitalization)
  Sender: FDA-Public Use
  Company Number: HU-BAYER-2013-148248

PATIENT
  Age: 59 Year
  Sex: Male

DRUGS (5)
  1. NEXAVAR [Suspect]
     Indication: RENAL CANCER METASTATIC
     Dosage: 400 MG, BID
     Route: 048
     Dates: start: 20131119, end: 201311
  2. NEXAVAR [Suspect]
     Indication: RENAL CANCER METASTATIC
     Dosage: REDUCED DOSE
     Route: 048
     Dates: start: 201311
  3. INDAPAMIDE W/PERINDOPRIL [Concomitant]
     Indication: HYPERTENSION
     Dosage: 4/1,25MG
     Route: 048
  4. PANTOPRAZOLE [Concomitant]
     Route: 048
  5. NO-SPA [Concomitant]

REACTIONS (3)
  - Abdominal pain [Recovering/Resolving]
  - Inflammatory marker increased [Recovering/Resolving]
  - Hepatotoxicity [Recovering/Resolving]
